FAERS Safety Report 26151721 (Version 1)
Quarter: 2025Q4

REPORT INFORMATION
  Report Type: Spontaneous
  Country: US (occurrence: None)
  Receive Date: 20251212
  Receipt Date: 20251212
  Transmission Date: 20260117
  Serious: Yes (Life-Threatening, Hospitalization, Disabling, Other)
  Sender: FDA-CTU
  Company Number: None

PATIENT
  Age: 41 Year
  Sex: Male
  Weight: 107.95 kg

DRUGS (1)
  1. BACTRIM [Suspect]
     Active Substance: SULFAMETHOXAZOLE\TRIMETHOPRIM
     Indication: Ear infection
     Dosage: OTHER QUANTITY : TWICE /EVERY 12 HOURS ;
     Route: 048
     Dates: start: 20240312, end: 20240315

REACTIONS (9)
  - Stevens-Johnson syndrome [None]
  - Influenza like illness [None]
  - Back injury [None]
  - Impaired work ability [None]
  - Victim of abuse [None]
  - Pain [None]
  - Testicular pain [None]
  - Epididymitis [None]
  - Sciatica [None]

NARRATIVE: CASE EVENT DATE: 20240401
